FAERS Safety Report 24126251 (Version 1)
Quarter: 2024Q3

REPORT INFORMATION
  Report Type: Spontaneous
  Country: US (occurrence: None)
  Receive Date: 20240721
  Receipt Date: 20240721
  Transmission Date: 20241017
  Serious: No
  Sender: Public
  Company Number: None

PATIENT
  Age: 38 Year
  Sex: Female
  Weight: 76.05 kg

DRUGS (1)
  1. AMOXICILLIN [Suspect]
     Active Substance: AMOXICILLIN
     Indication: Product used for unknown indication
     Route: 048
     Dates: start: 20240718, end: 20240721

REACTIONS (4)
  - Hypersensitivity [None]
  - Pruritus [None]
  - Rash [None]
  - Product label issue [None]

NARRATIVE: CASE EVENT DATE: 20240721
